FAERS Safety Report 9261892 (Version 3)
Quarter: 2014Q1

REPORT INFORMATION
  Report Type: Spontaneous
  Country: US (occurrence: US)
  Receive Date: 20130429
  Receipt Date: 20140317
  Transmission Date: 20141002
  Serious: Yes (Hospitalization, Other)
  Sender: FDA-Public Use
  Company Number: US-PFIZER INC-2013132730

PATIENT
  Age: 84 Year
  Sex: Female
  Weight: 55.78 kg

DRUGS (5)
  1. ACCUPRIL [Suspect]
     Indication: HYPERTENSION
     Dosage: UNK
  2. ZOLOFT [Suspect]
     Indication: NERVOUS SYSTEM DISORDER
     Dosage: 50MG IN THE MORNING AND HALF OF 50MG TABLET AT NIGHT
     Route: 048
  3. ZOLOFT [Suspect]
     Dosage: 50 MG, 1X/DAY
  4. DIOVAN [Concomitant]
     Indication: BLOOD PRESSURE
     Dosage: UNK, 1X/DAY
  5. LIBRIUM [Concomitant]
     Dosage: UNK

REACTIONS (2)
  - Hip fracture [Recovering/Resolving]
  - Fall [Unknown]
